FAERS Safety Report 11427836 (Version 4)
Quarter: 2015Q4

REPORT INFORMATION
  Report Type: Report from Study
  Country: US (occurrence: US)
  Receive Date: 20150828
  Receipt Date: 20151013
  Transmission Date: 20160304
  Serious: Yes (Other)
  Sender: FDA-Public Use
  Company Number: US-AMGEN-USASL2015086726

PATIENT
  Age: 65 Year
  Sex: Female

DRUGS (4)
  1. ENBREL [Suspect]
     Active Substance: ETANERCEPT
     Indication: RHEUMATOID ARTHRITIS
     Dosage: 50 MG, QWK
     Route: 065
     Dates: start: 201410
  2. ENBREL [Suspect]
     Active Substance: ETANERCEPT
     Dosage: 50 MG, QWK
     Route: 065
  3. PREDNISONE. [Concomitant]
     Active Substance: PREDNISONE
     Dosage: 5 MG, QD
     Dates: start: 2012
  4. PLAQUENIL [Concomitant]
     Active Substance: HYDROXYCHLOROQUINE SULFATE
     Dosage: 200 MG, BID

REACTIONS (21)
  - Pyelonephritis [Unknown]
  - Needle track marks [Unknown]
  - Rheumatoid arthritis [Unknown]
  - Injection site bruising [Unknown]
  - Urinary tract infection [Unknown]
  - Kidney infection [Unknown]
  - Fall [Unknown]
  - Skin atrophy [Unknown]
  - Rash pruritic [Unknown]
  - Corrective lens user [Unknown]
  - Arthralgia [Unknown]
  - Musculoskeletal discomfort [Unknown]
  - Renal pain [Unknown]
  - Device issue [Unknown]
  - Wound [Unknown]
  - Laceration [Unknown]
  - Pollakiuria [Unknown]
  - Sepsis [Unknown]
  - Memory impairment [Unknown]
  - Incorrect dose administered [Unknown]
  - Injection site pain [Unknown]

NARRATIVE: CASE EVENT DATE: 201410
